FAERS Safety Report 6445989-4 (Version None)
Quarter: 2009Q4

REPORT INFORMATION
  Report Type: 
  Country: None (occurrence: None)
  Receive Date: 20091119
  Receipt Date: 20090602
  Transmission Date: 20100525
  Serious: No
  Sender: FDA-Public Use
  Company Number: A0788018A

PATIENT
  Age: 64 Year
  Sex: Female

DRUGS (4)
  1. WELLBUTRIN SR [Suspect]
     Indication: DEPRESSION
     Dosage: 150MG TWICE PER DAY
     Route: 048
  2. XANAX [Concomitant]
  3. SEROQUEL [Concomitant]
  4. BUSPAR [Concomitant]

REACTIONS (4)
  - FOOD INTOLERANCE [None]
  - ORAL PAIN [None]
  - TONGUE ULCERATION [None]
  - WEIGHT DECREASED [None]
